FAERS Safety Report 8313620-9 (Version None)
Quarter: 2012Q2

REPORT INFORMATION
  Report Type: 
  Country: None (occurrence: None)
  Receive Date: 20120426
  Receipt Date: 20120215
  Transmission Date: 20120825
  Serious: Yes (Other)
  Sender: FDA-Public Use
  Company Number: US-ASTELLAS-2012US002876

PATIENT
  Sex: Male
  Weight: 89 kg

DRUGS (2)
  1. TARCEVA [Suspect]
     Indication: LUNG NEOPLASM MALIGNANT
     Dosage: 150 MG, UID/QD
     Route: 048
     Dates: start: 20111206, end: 20111220
  2. TARCEVA [Suspect]
     Dosage: 100 MG, UNKNOWN/D
     Route: 048

REACTIONS (12)
  - SKIN EXFOLIATION [None]
  - RASH ERYTHEMATOUS [None]
  - SWELLING [None]
  - CONJUNCTIVITIS [None]
  - RASH [None]
  - EYE PAIN [None]
  - DERMATITIS [None]
  - SWELLING FACE [None]
  - ERYTHEMA [None]
  - DIARRHOEA [None]
  - PAIN [None]
  - CORNEAL OEDEMA [None]
